FAERS Safety Report 17158152 (Version 1)
Quarter: 2019Q4

REPORT INFORMATION
  Report Type: Spontaneous
  Country: JP (occurrence: JP)
  Receive Date: 20191216
  Receipt Date: 20191216
  Transmission Date: 20200122
  Serious: Yes (Death)
  Sender: FDA-Public Use
  Company Number: JP-ROCHE-2476622

PATIENT
  Age: 53 Year
  Sex: Female

DRUGS (1)
  1. DENOSINE [GANCICLOVIR] [Suspect]
     Active Substance: GANCICLOVIR
     Indication: CYTOMEGALOVIRUS INFECTION
     Route: 041

REACTIONS (2)
  - Death [Fatal]
  - Injection site extravasation [Unknown]

NARRATIVE: CASE EVENT DATE: 20191107
